FAERS Safety Report 13555220 (Version 1)
Quarter: 2017Q2

REPORT INFORMATION
  Report Type: Spontaneous
  Country: IN (occurrence: IN)
  Receive Date: 20170517
  Receipt Date: 20170517
  Transmission Date: 20170830
  Serious: Yes (Death, Other)
  Sender: FDA-Public Use
  Company Number: IN-PFIZER INC-2017213282

PATIENT
  Age: 57 Year
  Sex: Female

DRUGS (2)
  1. SUTENT [Suspect]
     Active Substance: SUNITINIB MALATE
     Dosage: 25 MG, UNK
  2. SUTENT [Suspect]
     Active Substance: SUNITINIB MALATE
     Indication: GASTROINTESTINAL STROMAL TUMOUR
     Dosage: 50 MG, 1X/DAY
     Route: 048
     Dates: start: 20160411

REACTIONS (9)
  - Mucosal inflammation [Unknown]
  - Oral discomfort [Unknown]
  - Alopecia [Unknown]
  - Peripheral swelling [Unknown]
  - Neoplasm progression [Fatal]
  - Ageusia [Unknown]
  - Contusion [Unknown]
  - Ascites [Unknown]
  - Renal failure [Unknown]
